FAERS Safety Report 20657234 (Version 2)
Quarter: 2022Q2

REPORT INFORMATION
  Report Type: Report from Study
  Country: AT (occurrence: AT)
  Receive Date: 20220331
  Receipt Date: 20220414
  Transmission Date: 20220721
  Serious: Yes (Death)
  Sender: FDA-Public Use
  Company Number: AT-ABBVIE-22K-009-4281568-00

PATIENT
  Age: 78 Year
  Sex: Male
  Weight: 70 kg

DRUGS (13)
  1. CARBIDOPA\LEVODOPA [Suspect]
     Active Substance: CARBIDOPA\LEVODOPA
     Indication: Parkinson^s disease
     Dosage: 16H THERAPY: MD: 8.0ML, CR DAYTIME: 2.0ML/H, ED: 1.0ML?FROM 6AM TO 10PM
     Route: 050
     Dates: start: 20220126, end: 20220217
  2. CARBIDOPA\LEVODOPA [Suspect]
     Active Substance: CARBIDOPA\LEVODOPA
  3. BENSERAZIDE HYDROCHLORIDE\LEVODOPA [Concomitant]
     Active Substance: BENSERAZIDE HYDROCHLORIDE\LEVODOPA
     Indication: Product used for unknown indication
     Route: 048
     Dates: start: 20220126
  4. CLOZAPINE [Concomitant]
     Active Substance: CLOZAPINE
     Indication: Product used for unknown indication
     Route: 048
  5. TEMESTA [Concomitant]
     Indication: Product used for unknown indication
  6. CLOZAPINE [Concomitant]
     Active Substance: CLOZAPINE
     Indication: Product used for unknown indication
  7. SERTRALINE HYDROCHLORIDE [Concomitant]
     Active Substance: SERTRALINE HYDROCHLORIDE
     Indication: Product used for unknown indication
  8. LACTULOSE [Concomitant]
     Active Substance: LACTULOSE
     Indication: Product used for unknown indication
  9. HYALURONATE SODIUM [Concomitant]
     Active Substance: HYALURONATE SODIUM
     Indication: Product used for unknown indication
  10. LATANOPROST [Concomitant]
     Active Substance: LATANOPROST
     Indication: Product used for unknown indication
  11. COVID-19 VACCINE [Concomitant]
     Indication: COVID-19 prophylaxis
     Dosage: FIRST DOSE
  12. COVID-19 VACCINE [Concomitant]
     Dosage: SECOND DOSE
  13. COVID-19 VACCINE [Concomitant]
     Dosage: THIRD DOSE

REACTIONS (7)
  - COVID-19 [Fatal]
  - Sepsis [Fatal]
  - Pneumonia aspiration [Fatal]
  - General physical health deterioration [Not Recovered/Not Resolved]
  - Open angle glaucoma [Unknown]
  - Dementia [Unknown]
  - Stoma site haemorrhage [Not Recovered/Not Resolved]

NARRATIVE: CASE EVENT DATE: 20220101
